FAERS Safety Report 8181249-1 (Version None)
Quarter: 2012Q1

REPORT INFORMATION
  Report Type: 
  Country: None (occurrence: None)
  Receive Date: 20120302
  Receipt Date: 20120223
  Transmission Date: 20120608
  Serious: Yes (Other)
  Sender: FDA-Public Use
  Company Number: US-BAYER-2011-067695

PATIENT
  Age: 38 Year
  Sex: Female
  Weight: 74.83 kg

DRUGS (3)
  1. YASMIN [Suspect]
     Indication: CONTRACEPTION
     Dosage: UNK
     Dates: start: 20060626, end: 20080201
  2. DROSPIRENONE AND ETHINYL ESTRADIOL [Suspect]
     Indication: CONTRACEPTION
     Dosage: UNK
     Dates: start: 20090121, end: 20090801
  3. YASMIN [Suspect]
     Dosage: UNK
     Dates: start: 20090121, end: 20091201

REACTIONS (9)
  - BILIARY DYSKINESIA [None]
  - ABDOMINAL PAIN [None]
  - FLATULENCE [None]
  - MUSCLE SPASMS [None]
  - VOMITING [None]
  - ABDOMINAL DISTENSION [None]
  - ABDOMINAL PAIN UPPER [None]
  - PAIN [None]
  - NAUSEA [None]
